FAERS Safety Report 11330890 (Version 4)
Quarter: 2018Q2

REPORT INFORMATION
  Report Type: Spontaneous
  Country: US (occurrence: US)
  Receive Date: 20150803
  Receipt Date: 20180518
  Transmission Date: 20180711
  Serious: Yes (Life-Threatening)
  Sender: FDA-Public Use
  Company Number: US-TEVA-582266USA

PATIENT
  Weight: 56.75 kg

DRUGS (10)
  1. ROBAXIN [Concomitant]
     Active Substance: METHOCARBAMOL
     Indication: MUSCLE SPASMS
  2. NUVIGIL [Suspect]
     Active Substance: ARMODAFINIL
     Indication: SOMNOLENCE
     Route: 065
  3. ACTIQ [Suspect]
     Active Substance: FENTANYL CITRATE
     Indication: PAIN
  4. ALPRAZOLAM. [Concomitant]
     Active Substance: ALPRAZOLAM
     Indication: PAIN
  5. NEURONTIN [Concomitant]
     Active Substance: GABAPENTIN
     Indication: NERVE INJURY
  6. ACTIQ [Suspect]
     Active Substance: FENTANYL CITRATE
     Indication: BREAKTHROUGH PAIN
     Dosage: UP TO 4 A DAY AS NEEDED
     Route: 048
     Dates: start: 2013, end: 2016
  7. LIDODERM [Concomitant]
     Active Substance: LIDOCAINE
     Indication: PAIN
  8. MS CONTIN [Concomitant]
     Active Substance: MORPHINE SULFATE
     Indication: PAIN
  9. TENORMIN [Concomitant]
     Active Substance: ATENOLOL
     Indication: CARDIAC DISORDER
  10. ESTRADIOL. [Concomitant]
     Active Substance: ESTRADIOL
     Indication: OESTROGEN REPLACEMENT THERAPY

REACTIONS (14)
  - Dental caries [Unknown]
  - Tooth fracture [Unknown]
  - Tooth infection [Unknown]
  - Tooth erosion [Unknown]
  - Social avoidant behaviour [Unknown]
  - Emotional distress [Unknown]
  - Toothache [Unknown]
  - Weight decreased [Unknown]
  - Abscess [Unknown]
  - Feeding disorder [Unknown]
  - Infection [Unknown]
  - White blood cell count increased [Unknown]
  - Depression [Unknown]
  - Tooth injury [Unknown]
